FAERS Safety Report 5546417-3 (Version None)
Quarter: 2007Q4

REPORT INFORMATION
  Report Type: 
  Country: None (occurrence: None)
  Receive Date: 20071206
  Receipt Date: 20071206
  Transmission Date: 20080405
  Serious: Yes (Other)
  Sender: FDA-Public Use
  Company Number: None

PATIENT
  Sex: Female

DRUGS (3)
  1. ZOCOR [Suspect]
     Indication: HYPERLIPIDAEMIA
     Dosage: 40MG ONCE DAILY PO
     Route: 048
     Dates: start: 20070629, end: 20071023
  2. ANTHRAX INJECTION [Suspect]
     Indication: ANTHRAX
     Dosage: 5 OF 6 DOSES IM
     Route: 030
     Dates: start: 19990101, end: 19990501
  3. ANTHRAX INJECTION [Suspect]
     Indication: PROPHYLAXIS
     Dosage: 5 OF 6 DOSES IM
     Route: 030
     Dates: start: 19990101, end: 19990501

REACTIONS (1)
  - RASH [None]
